FAERS Safety Report 8506742-0 (Version None)
Quarter: 2012Q3

REPORT INFORMATION
  Report Type: 
  Country: None (occurrence: None)
  Receive Date: 20120712
  Receipt Date: 20120706
  Transmission Date: 20120928
  Serious: No
  Sender: FDA-Public Use
  Company Number: US-PFIZER INC-2012162479

PATIENT
  Sex: Female

DRUGS (1)
  1. LYRICA [Suspect]
     Indication: SCIATICA
     Dosage: 75 MG, 2X/DAY

REACTIONS (7)
  - WEIGHT INCREASED [None]
  - ASTHENIA [None]
  - SOMNOLENCE [None]
  - FEELING ABNORMAL [None]
  - DRUG INEFFECTIVE [None]
  - JOINT SWELLING [None]
  - LOSS OF LIBIDO [None]
